FAERS Safety Report 6486202-1 (Version None)
Quarter: 2009Q4

REPORT INFORMATION
  Report Type: 
  Country: None (occurrence: None)
  Receive Date: 20091207
  Receipt Date: 20091124
  Transmission Date: 20100525
  Serious: Yes (Death, Other)
  Sender: FDA-Public Use
  Company Number: 2009S1000100

PATIENT
  Sex: Female

DRUGS (2)
  1. INOMAX [Suspect]
     Indication: ACUTE RESPIRATORY FAILURE
     Dosage: 40 PPM;CONT;INH
     Route: 055
     Dates: start: 20091119, end: 20091122
  2. INOMAX [Suspect]
     Indication: ACUTE RESPIRATORY FAILURE
     Dosage: 40 PPM;CONT;INH
     Route: 055
     Dates: start: 20091119, end: 20091122

REACTIONS (1)
  - OXYGEN SATURATION DECREASED [None]
